FAERS Safety Report 7989285-2 (Version None)
Quarter: 2011Q4

REPORT INFORMATION
  Report Type: 
  Country: None (occurrence: None)
  Receive Date: 20111007
  Receipt Date: 20110725
  Transmission Date: 20120403
  Serious: No
  Sender: FDA-Public Use
  Company Number: 2011HGS-002351

PATIENT
  Age: 53 Year
  Sex: Female
  Weight: 65.7716 kg

DRUGS (5)
  1. DEPO-MEDROL (METHYLPREDNISOLONE ACETATE)(METHYLPREDNISOLONE ACETATE) [Concomitant]
  2. OXYCONTIN (OXYCODONE HYDROCHLORIDE)(OXYCODONE HYDROCHLORIDE) [Concomitant]
  3. SOLU-MEDROL (METHYLPREDNISOLONE SODIUM SUCCINATE)(METHYLPREDNISOLONE S [Concomitant]
  4. BENLYSTA [Suspect]
     Indication: SYSTEMIC LUPUS ERYTHEMATOSUS
     Dosage: 10 MG/KG, 1 IN 14 D, INTRAVENOUS DRIP, 10 MG/KG, 1 IN 28 D, INTRAVENOUS DRIP
     Route: 041
  5. BENLYSTA [Suspect]
     Indication: SYSTEMIC LUPUS ERYTHEMATOSUS
     Dosage: 10 MG/KG, 1 IN 14 D, INTRAVENOUS DRIP, 10 MG/KG, 1 IN 28 D, INTRAVENOUS DRIP
     Route: 041
     Dates: start: 20110405, end: 20110504

REACTIONS (3)
  - SKIN DISCOLOURATION [None]
  - HYPERHIDROSIS [None]
  - CHILLS [None]
